FAERS Safety Report 5841932-7 (Version None)
Quarter: 2008Q3

REPORT INFORMATION
  Report Type: 
  Country: None (occurrence: None)
  Receive Date: 20080812
  Receipt Date: 20080725
  Transmission Date: 20090109
  Serious: Yes (Death, Life-Threatening, Hospitalization, Disabling, Other)
  Sender: FDA-Public Use
  Company Number: GB-MERCK-0801GBR00075

PATIENT
  Age: 34 Year
  Sex: Male
  Weight: 100 kg

DRUGS (4)
  1. ZOCOR [Suspect]
     Route: 048
     Dates: start: 20050101, end: 20071212
  2. ASPIRIN [Concomitant]
     Route: 048
     Dates: start: 20060101, end: 20071212
  3. AVANDAMET [Concomitant]
     Route: 048
     Dates: end: 20071212
  4. FENOFIBRATE [Concomitant]
     Route: 048
     Dates: start: 20060101, end: 20071212

REACTIONS (5)
  - ABDOMINAL PAIN [None]
  - PANCREATITIS [None]
  - PULMONARY EMBOLISM [None]
  - RENAL FAILURE [None]
  - TACHYPNOEA [None]
